FAERS Safety Report 6289711-3 (Version None)
Quarter: 2009Q3

REPORT INFORMATION
  Report Type: 
  Country: None (occurrence: None)
  Receive Date: 20090729
  Receipt Date: 20090729
  Transmission Date: 20100115
  Serious: No
  Sender: FDA-Public Use
  Company Number: None

PATIENT
  Age: 79 Year
  Sex: Female
  Weight: 49.4421 kg

DRUGS (2)
  1. BENZONATATE [Suspect]
     Indication: COUGH
     Dosage: ONE 3X A DAY ONLY TOOK 2 PILLS
     Dates: start: 20090713
  2. BENZONATATE [Suspect]
     Indication: COUGH
     Dosage: ONE 3X A DAY ONLY TOOK 2 PILLS
     Dates: start: 20090714

REACTIONS (1)
  - NAUSEA [None]
